FAERS Safety Report 9282702 (Version 1)
Quarter: 2013Q2

REPORT INFORMATION
  Report Type: Spontaneous
  Country: JP (occurrence: JP)
  Receive Date: 20130510
  Receipt Date: 20130510
  Transmission Date: 20140414
  Serious: Yes (Life-Threatening, Hospitalization, Other)
  Sender: FDA-Public Use
  Company Number: JP-PFIZER INC-2013122688

PATIENT
  Age: 61 Year
  Sex: Male
  Weight: 66.1 kg

DRUGS (14)
  1. LYRICA [Suspect]
     Indication: HYPOAESTHESIA
     Dosage: 150 MG, 2X/DAY
     Route: 048
     Dates: start: 201108, end: 20130416
  2. TALION [Concomitant]
     Dosage: 10 MG, 1X/DAY
     Dates: end: 20130416
  3. THYRADIN [Concomitant]
     Dosage: 50 UG, 1X/DAY
     Dates: end: 20130416
  4. SHAKUYAKUKANZOUTOU [Concomitant]
     Dosage: 2.5 G, 3X/DAY
     Dates: end: 20130416
  5. NATRIX [Concomitant]
     Dosage: 1 MG, 1X/DAY
     Dates: end: 20130416
  6. DIOVAN ^NOVARTIS^ [Concomitant]
     Dosage: 80 MG, 1X/DAY
     Dates: end: 20130416
  7. CONIEL [Concomitant]
     Dosage: 4 MG, 1X/DAY
     Dates: end: 20130416
  8. TAURINE [Concomitant]
     Dosage: 1 G, 3X/DAY
     Dates: end: 20130416
  9. SOLANAX [Concomitant]
     Dosage: 0.4 MG, 2X/DAY
     Dates: end: 20130416
  10. LENDORMIN [Concomitant]
     Dosage: 0.25 MG, 1X/DAY
     Dates: end: 20130416
  11. OPALMON [Concomitant]
     Dosage: 5 UG, 3X/DAY
     Dates: end: 20130416
  12. METHYCOBAL [Concomitant]
     Dosage: 500 UG, 3X/DAY
     Dates: end: 20130416
  13. LOXONIN [Concomitant]
     Indication: PAIN
     Dosage: UNK
  14. TAKEPRON [Concomitant]
     Dosage: 15 MG, 1X/DAY
     Dates: end: 20130416

REACTIONS (4)
  - Pneumonia [Recovering/Resolving]
  - Rhabdomyolysis [Recovered/Resolved]
  - Renal impairment [Recovered/Resolved]
  - Off label use [Unknown]
